FAERS Safety Report 10512501 (Version 1)
Quarter: 2014Q4

REPORT INFORMATION
  Report Type: Spontaneous
  Country: GB (occurrence: GB)
  Receive Date: 20141011
  Receipt Date: 20141011
  Transmission Date: 20150528
  Serious: Yes (Death, Other)
  Sender: FDA-Public Use
  Company Number: PHHY2014GB124545

PATIENT
  Age: 82 Year
  Sex: Female

DRUGS (2)
  1. ANTILYMPHOCYTE GLOBULIN [Suspect]
     Active Substance: THYMOCYTE IMMUNE GLOBULIN NOS
     Indication: IMMUNOSUPPRESSION
     Route: 065
     Dates: end: 2011
  2. CICLOSPORIN [Suspect]
     Active Substance: CYCLOSPORINE
     Indication: IMMUNOSUPPRESSION
     Route: 065
     Dates: end: 2011

REACTIONS (10)
  - Drug ineffective [Unknown]
  - Escherichia sepsis [Fatal]
  - Tongue oedema [Unknown]
  - Zygomycosis [Unknown]
  - Swollen tongue [Unknown]
  - Oral disorder [Unknown]
  - Tongue necrosis [Unknown]
  - Aplastic anaemia [Fatal]
  - Feeding disorder [Unknown]
  - Neutropenic sepsis [Unknown]
